FAERS Safety Report 12743407 (Version 2)
Quarter: 2016Q4

REPORT INFORMATION
  Report Type: Spontaneous
  Country: US (occurrence: US)
  Receive Date: 20160914
  Receipt Date: 20161104
  Transmission Date: 20170207
  Serious: Yes (Other)
  Sender: FDA-Public Use
  Company Number: ALCN2016US006301

PATIENT
  Sex: Female

DRUGS (1)
  1. GENTEAL NIGHT-TIME PM [Suspect]
     Active Substance: MINERAL OIL\PETROLATUM
     Indication: HERPES OPHTHALMIC
     Dosage: UNK
     Route: 047
     Dates: start: 201601

REACTIONS (3)
  - Visual acuity reduced [Unknown]
  - Product quality issue [Recovered/Resolved]
  - Blindness unilateral [Unknown]
